FAERS Safety Report 23960256 (Version 1)
Quarter: 2024Q2

REPORT INFORMATION
  Report Type: Spontaneous
  Country: US (occurrence: US)
  Receive Date: 20240611
  Receipt Date: 20240611
  Transmission Date: 20240716
  Serious: Yes (Death)
  Sender: FDA-Public Use
  Company Number: US-PROCTER+GAMBLE-PH24004723

PATIENT
  Age: 4 Month
  Sex: Male

DRUGS (5)
  1. DIPHENHYDRAMINE HYDROCHLORIDE [Suspect]
     Active Substance: DIPHENHYDRAMINE HYDROCHLORIDE
     Dosage: UNK
     Route: 048
  2. DEXTROMETHORPHAN [Suspect]
     Active Substance: DEXTROMETHORPHAN
     Route: 048
  3. BROMPHENIRAMINE [Suspect]
     Active Substance: BROMPHENIRAMINE
  4. RANITIDINE [Suspect]
     Active Substance: RANITIDINE
     Dosage: UNK
  5. LEVOMETHORPHAN [Suspect]
     Active Substance: LEVOMETHORPHAN
     Dosage: UNK

REACTIONS (2)
  - Toxicity to various agents [Fatal]
  - Postmortem blood drug level abnormal [Fatal]
